FAERS Safety Report 13713906 (Version 1)
Quarter: 2017Q3

REPORT INFORMATION
  Report Type: Spontaneous
  Country: US (occurrence: US)
  Receive Date: 20170704
  Receipt Date: 20170704
  Transmission Date: 20171127
  Serious: Yes (Other)
  Sender: FDA-Public Use
  Company Number: US-AUROBINDO-AUR-APL-2017-36133

PATIENT

DRUGS (1)
  1. CEFUROXIME AXETIL TABLETS USP 250 MG [Suspect]
     Active Substance: CEFUROXIME AXETIL
     Indication: PRODUCT USED FOR UNKNOWN INDICATION
     Dosage: UNK
     Route: 065
     Dates: start: 201703

REACTIONS (17)
  - Pyrexia [Unknown]
  - Anxiety [Unknown]
  - Chills [Unknown]
  - Hypersomnia [Unknown]
  - Mood swings [Unknown]
  - Nausea [Unknown]
  - Vomiting [Unknown]
  - Lethargy [Unknown]
  - Hypopnoea [Unknown]
  - Headache [Unknown]
  - Thirst [Unknown]
  - Abnormal dreams [Unknown]
  - Feeling abnormal [Unknown]
  - Diarrhoea [Unknown]
  - Bedridden [Unknown]
  - Fear [Unknown]
  - Asthenia [Unknown]

NARRATIVE: CASE EVENT DATE: 2017
